FAERS Safety Report 4463102-X (Version None)
Quarter: 2004Q3

REPORT INFORMATION
  Report Type: 
  Country: None (occurrence: None)
  Receive Date: 20040930
  Receipt Date: 20040920
  Transmission Date: 20050211
  Serious: Yes (Other)
  Sender: FDA-Public Use
  Company Number: NL-JNJFOC-20040901491

PATIENT

DRUGS (4)
  1. PANCREASE [Suspect]
     Indication: DRUG USE FOR UNKNOWN INDICATION
     Route: 049
  2. MICONAZOL [Concomitant]
  3. HYDROXOCOBALAMINE [Concomitant]
  4. HYDROCORTISONE/MICONAZOLE [Concomitant]

REACTIONS (1)
  - BLOOD URINE PRESENT [None]
